FAERS Safety Report 20641201 (Version 1)
Quarter: 2022Q1

REPORT INFORMATION
  Report Type: Spontaneous
  Country: US (occurrence: US)
  Receive Date: 20220328
  Receipt Date: 20220328
  Transmission Date: 20220423
  Serious: Yes (Hospitalization, Other)
  Sender: FDA-Public Use
  Company Number: US-AMGEN-USASP2022050954

PATIENT

DRUGS (1)
  1. PEGFILGRASTIM [Suspect]
     Active Substance: PEGFILGRASTIM
     Indication: Neutropenia
     Route: 065

REACTIONS (8)
  - Febrile neutropenia [Unknown]
  - Neutropenia [Unknown]
  - Respiratory tract infection [Unknown]
  - Pneumonia fungal [Unknown]
  - Soft tissue infection [Unknown]
  - Skin infection [Unknown]
  - Gastrointestinal infection [Unknown]
  - Herpes zoster [Unknown]
